FAERS Safety Report 25527346 (Version 1)
Quarter: 2025Q3

REPORT INFORMATION
  Report Type: Report from Study
  Country: US (occurrence: US)
  Receive Date: 20250708
  Receipt Date: 20250708
  Transmission Date: 20251020
  Serious: No
  Sender: DECIPHERA PHARMACEUTICALS
  Company Number: US-DECIPHERA PHARMACEUTICALS LLC-2025US000760

PATIENT
  Age: 32 Year
  Sex: Female

DRUGS (2)
  1. ROMVIMZA [Suspect]
     Active Substance: VIMSELTINIB
     Indication: Neoplasm
     Dosage: 30 MILLIGRAM, TWICE WEEKLY
     Route: 048
     Dates: start: 20250612
  2. ROMVIMZA [Suspect]
     Active Substance: VIMSELTINIB
     Indication: Giant cell tumour of tendon sheath

REACTIONS (1)
  - Pain [Not Recovered/Not Resolved]

NARRATIVE: CASE EVENT DATE: 20250601
